FAERS Safety Report 7960306-6 (Version None)
Quarter: 2011Q4

REPORT INFORMATION
  Report Type: 
  Country: None (occurrence: None)
  Receive Date: 20111206
  Receipt Date: 20111206
  Transmission Date: 20120403
  Serious: Yes (Other)
  Sender: FDA-Public Use
  Company Number: PHHO2010MX16861

PATIENT
  Sex: Male
  Weight: 77.7 kg

DRUGS (5)
  1. AFINITOR [Suspect]
     Indication: METASTATIC GASTRIC CANCER
     Dosage: 10 MG, QD
     Route: 048
     Dates: start: 20100802, end: 20101108
  2. AFINITOR [Suspect]
     Dosage: DOUBLE BLIND
     Route: 048
     Dates: start: 20101207, end: 20110118
  3. FERROUS SULFATE TAB [Concomitant]
     Indication: ANAEMIA
  4. CINITAPRIDE [Concomitant]
  5. AFINITOR [Suspect]
     Dosage: DOUBLE BLIND
     Route: 048
     Dates: start: 20110118

REACTIONS (5)
  - GASTROINTESTINAL HAEMORRHAGE [None]
  - HAEMOGLOBIN DECREASED [None]
  - ASTHENIA [None]
  - ANAEMIA [None]
  - MELAENA [None]
